FAERS Safety Report 8739182 (Version 3)
Quarter: 2012Q4

REPORT INFORMATION
  Report Type: Report from Study
  Country: US (occurrence: US)
  Receive Date: 20120823
  Receipt Date: 20120922
  Transmission Date: 20130627
  Serious: Yes (Hospitalization)
  Sender: FDA-Public Use
  Company Number: US-ABBOTT-12P-163-0968505-00

PATIENT
  Age: 65 Year
  Sex: Female

DRUGS (32)
  1. HUMIRA 40 MG/0.8 ML PEN [Suspect]
     Indication: RHEUMATOID ARTHRITIS
     Dates: start: 20120601
  2. MIRAPEX [Suspect]
     Indication: PRODUCT USED FOR UNKNOWN INDICATION
  3. PERCOCET [Concomitant]
     Indication: PAIN
  4. UNKNOWN MEDICATION [Concomitant]
     Indication: HYPERTENSION
  5. UNKNOWN MEDICATION [Concomitant]
     Indication: DIABETES MELLITUS
     Route: 048
  6. UNKNOWN MEDICATION [Concomitant]
     Indication: ASTHMA
     Route: 048
  7. UNKNOWN MEDICATION [Concomitant]
     Indication: INSOMNIA
     Route: 048
  8. UNKNOWN MEDICATION [Concomitant]
     Indication: PAIN
     Route: 048
  9. UNKNOWN MEDICATION [Concomitant]
     Indication: DEPRESSION
     Route: 048
  10. UNKNOWN MEDICATION [Concomitant]
     Indication: RHEUMATOID ARTHRITIS
     Route: 048
  11. ABILIFY [Concomitant]
     Indication: PRODUCT USED FOR UNKNOWN INDICATION
  12. REMERON [Concomitant]
     Indication: PRODUCT USED FOR UNKNOWN INDICATION
  13. DESYREL [Concomitant]
     Indication: PRODUCT USED FOR UNKNOWN INDICATION
  14. EFFEXOR XR [Concomitant]
     Indication: PRODUCT USED FOR UNKNOWN INDICATION
  15. ACCOLATE [Concomitant]
     Indication: PRODUCT USED FOR UNKNOWN INDICATION
  16. PEPCID [Concomitant]
     Indication: PRODUCT USED FOR UNKNOWN INDICATION
  17. JANUVIA [Concomitant]
     Indication: PRODUCT USED FOR UNKNOWN INDICATION
  18. PREMARIN [Concomitant]
     Indication: PRODUCT USED FOR UNKNOWN INDICATION
  19. ATIVAN [Concomitant]
     Indication: PRODUCT USED FOR UNKNOWN INDICATION
  20. CLARITIN [Concomitant]
     Indication: PRODUCT USED FOR UNKNOWN INDICATION
  21. ATARAX [Concomitant]
     Indication: PRODUCT USED FOR UNKNOWN INDICATION
  22. AMBIEN [Concomitant]
     Indication: PRODUCT USED FOR UNKNOWN INDICATION
  23. WARFARIN [Concomitant]
     Indication: PRODUCT USED FOR UNKNOWN INDICATION
  24. ZOCOR [Concomitant]
     Indication: PRODUCT USED FOR UNKNOWN INDICATION
  25. ENDOCET [Concomitant]
     Indication: PRODUCT USED FOR UNKNOWN INDICATION
  26. OXYCONTIN [Concomitant]
     Indication: PRODUCT USED FOR UNKNOWN INDICATION
  27. TRAZODONE [Concomitant]
     Indication: PRODUCT USED FOR UNKNOWN INDICATION
  28. MAXIMUM D3 [Concomitant]
     Indication: PRODUCT USED FOR UNKNOWN INDICATION
  29. DEPLIN [Concomitant]
     Indication: PRODUCT USED FOR UNKNOWN INDICATION
  30. FOLIC ACID [Concomitant]
     Indication: PRODUCT USED FOR UNKNOWN INDICATION
  31. METHOTREXATE SODIUM [Concomitant]
     Indication: PRODUCT USED FOR UNKNOWN INDICATION
  32. MAXIMUM D3 [Concomitant]
     Indication: PRODUCT USED FOR UNKNOWN INDICATION

REACTIONS (2)
  - Asthma [Recovering/Resolving]
  - Device malfunction [Unknown]
